FAERS Safety Report 8140056-6 (Version None)
Quarter: 2012Q1

REPORT INFORMATION
  Report Type: 
  Country: None (occurrence: None)
  Receive Date: 20120215
  Receipt Date: 20120202
  Transmission Date: 20120608
  Serious: Yes (Other)
  Sender: FDA-Public Use
  Company Number: AU-MYLANLABS-2012S1002614

PATIENT
  Age: 64 Year
  Sex: Male

DRUGS (3)
  1. GEMCITABINE [Suspect]
     Indication: LUNG SQUAMOUS CELL CARCINOMA STAGE UNSPECIFIED
     Route: 065
  2. CARBOPLATIN [Suspect]
     Indication: LUNG SQUAMOUS CELL CARCINOMA STAGE UNSPECIFIED
     Route: 065
  3. SILDENAFIL [Concomitant]
     Indication: PULMONARY HYPERTENSION
     Route: 065

REACTIONS (1)
  - EXTREMITY NECROSIS [None]
